FAERS Safety Report 25655300 (Version 2)
Quarter: 2025Q3

REPORT INFORMATION
  Report Type: Spontaneous
  Country: US (occurrence: US)
  Receive Date: 20250807
  Receipt Date: 20250902
  Transmission Date: 20251021
  Serious: Yes (Life-Threatening, Hospitalization)
  Sender: TEVA
  Company Number: US-TEVA-VS-3358102

PATIENT
  Age: 40 Year
  Sex: Male

DRUGS (11)
  1. EPINEPHRINE [Suspect]
     Active Substance: EPINEPHRINE
     Indication: Cardiogenic shock
     Route: 065
  2. DILTIAZEM [Suspect]
     Active Substance: DILTIAZEM
     Indication: Product used for unknown indication
     Route: 065
  3. GLUCAGON [Suspect]
     Active Substance: GLUCAGON
     Indication: Toxicity to various agents
     Route: 065
  4. FLUOXETINE [Suspect]
     Active Substance: FLUOXETINE HYDROCHLORIDE
     Indication: Product used for unknown indication
     Route: 065
  5. NOREPINEPHRINE [Suspect]
     Active Substance: NOREPINEPHRINE
     Indication: Cardiogenic shock
     Route: 065
  6. METOPROLOL [Suspect]
     Active Substance: METOPROLOL
     Indication: Product used for unknown indication
     Route: 065
  7. DOBUTAMINE [Suspect]
     Active Substance: DOBUTAMINE HYDROCHLORIDE
     Indication: Cardiogenic shock
     Route: 065
  8. FAT EMULSION NOS [Suspect]
     Active Substance: EGG PHOSPHOLIPIDS\SAFFLOWER OIL\SOYBEAN OIL
     Indication: Toxicity to various agents
     Route: 065
  9. INSULIN NOS [Suspect]
     Active Substance: INSULIN NOS
     Indication: Toxicity to various agents
     Route: 065
  10. ISOPROTERENOL HYDROCHLORIDE [Suspect]
     Active Substance: ISOPROTERENOL HYDROCHLORIDE
     Indication: Cardiogenic shock
     Route: 065
  11. DEVICE [Suspect]
     Active Substance: DEVICE
     Route: 065

REACTIONS (9)
  - Toxicity to various agents [Unknown]
  - Cardiogenic shock [Recovering/Resolving]
  - Drug ineffective [Unknown]
  - Bradycardia [Recovering/Resolving]
  - Cerebral haemorrhage [Unknown]
  - Hypoperfusion [Unknown]
  - Overdose [Unknown]
  - Haemorrhagic transformation stroke [Unknown]
  - Ischaemic stroke [Unknown]
